FAERS Safety Report 8067868-1 (Version None)
Quarter: 2012Q1

REPORT INFORMATION
  Report Type: 
  Country: None (occurrence: None)
  Receive Date: 20120124
  Receipt Date: 20120120
  Transmission Date: 20120608
  Serious: Yes (Other)
  Sender: FDA-Public Use
  Company Number: US-AMGEN-USASP2012004250

PATIENT
  Age: 81 Year
  Sex: Female

DRUGS (10)
  1. NORVASC [Concomitant]
     Dosage: 1 MG, UNK
  2. LYRICA [Concomitant]
     Dosage: 2 MG, UNK
  3. VENTOLIN [Concomitant]
  4. PROTONIX [Concomitant]
     Dosage: UNK MG, UNK
  5. VITAMIN D [Concomitant]
  6. PROLIA [Suspect]
     Indication: OSTEOPOROSIS POSTMENOPAUSAL
     Dosage: UNK
     Dates: start: 20111109
  7. SEREVENT [Concomitant]
     Dosage: 2 UNK, UNK
  8. FENTANYL [Concomitant]
     Dosage: 1 MG, UNK
  9. ASPIRIN ANALGESIC [Concomitant]
     Dosage: 81 MG, 3 TIMES/WK
  10. CALTRATE                           /00751519/ [Concomitant]
     Dosage: UNK

REACTIONS (14)
  - OESOPHAGEAL OBSTRUCTION [None]
  - OESOPHAGITIS [None]
  - TREMOR [None]
  - PRURITUS [None]
  - CHEST PAIN [None]
  - DYSPNOEA [None]
  - PAIN [None]
  - OESOPHAGEAL SPASM [None]
  - MUSCLE SPASMS [None]
  - ABDOMINAL PAIN [None]
  - DIARRHOEA [None]
  - ACTIVITIES OF DAILY LIVING IMPAIRED [None]
  - RASH [None]
  - HYPERSENSITIVITY [None]
